FAERS Safety Report 8587267-3 (Version None)
Quarter: 2012Q3

REPORT INFORMATION
  Report Type: 
  Country: None (occurrence: None)
  Receive Date: 20120810
  Receipt Date: 20111004
  Transmission Date: 20120928
  Serious: No
  Sender: FDA-Public Use
  Company Number: US-ASTRAZENECA-2011SE58619

PATIENT
  Age: 44 Year
  Sex: Female

DRUGS (1)
  1. ANASTROZOLE [Suspect]
     Dosage: GENERIC
     Route: 048

REACTIONS (4)
  - ABDOMINAL PAIN UPPER [None]
  - MALAISE [None]
  - ABDOMINAL DISCOMFORT [None]
  - POLLAKIURIA [None]
